FAERS Safety Report 19773450 (Version 1)
Quarter: 2021Q3

REPORT INFORMATION
  Report Type: Report from Study
  Country: US (occurrence: US)
  Receive Date: 20210901
  Receipt Date: 20210901
  Transmission Date: 20211014
  Serious: Yes (Other)
  Sender: FDA-Public Use
  Company Number: US-EMD SERONO-9261334

PATIENT
  Age: 40 Year
  Sex: Female

DRUGS (1)
  1. REBIF [Suspect]
     Active Substance: INTERFERON BETA-1A
     Indication: PRODUCT USED FOR UNKNOWN INDICATION
     Route: 058
     Dates: start: 20120701

REACTIONS (6)
  - Hysterectomy [Recovering/Resolving]
  - Visual impairment [Unknown]
  - Hypothyroidism [Recovering/Resolving]
  - Blood pressure increased [Recovered/Resolved]
  - Alopecia [Unknown]
  - Stress [Unknown]

NARRATIVE: CASE EVENT DATE: 2018
